FAERS Safety Report 5593426-4 (Version None)
Quarter: 2008Q1

REPORT INFORMATION
  Report Type: 
  Country: None (occurrence: None)
  Receive Date: 20080114
  Receipt Date: 20080107
  Transmission Date: 20080703
  Serious: Yes (Hospitalization)
  Sender: FDA-Public Use
  Company Number: CAR-2007-053 F-U#2

PATIENT
  Age: 44 Year
  Sex: Female

DRUGS (5)
  1. ULCERMIN (SUCRALFATE) 100MG/ML ORAL SUSPENSION [Suspect]
     Indication: DUODENAL ULCER
     Dosage: 3000 MG ORAL
     Route: 048
     Dates: start: 20070723, end: 20070730
  2. RABEPRAZOLE SODIUM [Suspect]
     Indication: DUODENAL ULCER
     Dosage: 10 MG ORAL
     Route: 048
     Dates: start: 20070723, end: 20070730
  3. ALLOID G (SODIUM ALGINATE) [Suspect]
     Indication: DUODENAL ULCER
     Dosage: 30 ML ORAL
     Route: 048
     Dates: start: 20070723, end: 20070730
  4. GLORIAMIN (LEVOGLUTAMIDE, AZULENE SODIUM SULFONATE) [Suspect]
     Indication: DUODENAL ULCER
     Dosage: 0.5 G 3 TIMES A DAY GRANULES ORAL
     Route: 048
     Dates: start: 20070723, end: 20070730
  5. THIATON (TIQUIZIUM BROMIDE) [Suspect]
     Indication: DUODENAL ULCER
     Dosage: 3 U CAPSULES ORAL
     Route: 048
     Dates: start: 20070723, end: 20070730

REACTIONS (2)
  - HEPATITIS ACUTE [None]
  - LYMPHOCYTE STIMULATION TEST POSITIVE [None]
